FAERS Safety Report 19017940 (Version 5)
Quarter: 2022Q1

REPORT INFORMATION
  Report Type: Report from Study
  Country: DE (occurrence: DE)
  Receive Date: 20210317
  Receipt Date: 20220302
  Transmission Date: 20220423
  Serious: Yes (Hospitalization)
  Sender: FDA-Public Use
  Company Number: DE-BRISTOL-MYERS SQUIBB COMPANY-BMS-2021-024698

PATIENT
  Age: 75 Year
  Sex: Female
  Weight: 50.4 kg

DRUGS (8)
  1. NIVOLUMAB [Suspect]
     Active Substance: NIVOLUMAB
     Indication: Non-small cell lung cancer metastatic
     Dosage: 240 MILLIGRAM
     Route: 042
     Dates: start: 20200305, end: 20210304
  2. NINTEDANIB [Suspect]
     Active Substance: NINTEDANIB
     Indication: Non-small cell lung cancer metastatic
     Dosage: 300 MILLIGRAM, QD
     Route: 048
     Dates: start: 20200305, end: 20210310
  3. DRONABINOL [Concomitant]
     Active Substance: DRONABINOL
     Indication: Weight decreased
     Dosage: 250 MILLIGRAM, QD, 15-21 DROPS
     Route: 048
     Dates: start: 20210129
  4. PROPRANOLOL HYDROCHLORIDE [Concomitant]
     Active Substance: PROPRANOLOL HYDROCHLORIDE
     Indication: Hypertension
     Dosage: 10 MILLIGRAM, TID
     Route: 048
     Dates: start: 20201222
  5. ACLIDINIUM BROMIDE\FORMOTEROL FUMARATE [Concomitant]
     Active Substance: ACLIDINIUM BROMIDE\FORMOTEROL FUMARATE
     Indication: Chronic obstructive pulmonary disease
     Dosage: 340/12 MICROGRAM, BID
     Dates: start: 20180101
  6. ALLOPURINOL [Concomitant]
     Active Substance: ALLOPURINOL
     Indication: Hyperuricaemia
     Dosage: 100 MILLIGRAM, QD
     Route: 048
     Dates: start: 20200115
  7. FOLIC ACID [Concomitant]
     Active Substance: FOLIC ACID
     Indication: Supportive care
     Dosage: 0.4 MILLIGRAM, QD
     Route: 048
     Dates: start: 20200115
  8. MOVIPREP [Concomitant]
     Active Substance: ASCORBIC ACID\POLYETHYLENE GLYCOL 3350\POTASSIUM CHLORIDE\SODIUM ASCORBATE\SODIUM CHLORIDE\SODIUM SU
     Indication: Constipation
     Dosage: UNK, PRN
     Route: 048
     Dates: start: 20210108

REACTIONS (1)
  - Performance status decreased [Recovered/Resolved with Sequelae]

NARRATIVE: CASE EVENT DATE: 20210310
